FAERS Safety Report 12531736 (Version 3)
Quarter: 2016Q3

REPORT INFORMATION
  Report Type: Spontaneous
  Country: US (occurrence: US)
  Receive Date: 20160706
  Receipt Date: 20160808
  Transmission Date: 20161109
  Serious: Yes (Hospitalization, Other)
  Sender: FDA-Public Use
  Company Number: US-ASTRAZENECA-2016SE71217

PATIENT
  Age: 53 Year
  Sex: Female

DRUGS (8)
  1. FEMARA [Suspect]
     Active Substance: LETROZOLE
     Indication: BONE METABOLISM DISORDER
     Dosage: 2.5 GENERIC
     Route: 065
     Dates: start: 201601, end: 201605
  2. ZOMETA [Suspect]
     Active Substance: ZOLEDRONIC ACID
     Dosage: MONTHLY
     Route: 065
     Dates: start: 201501, end: 201509
  3. FASLODEX [Suspect]
     Active Substance: FULVESTRANT
     Dosage: DOSE AND FREQUENCY UNKNOWN
     Route: 030
     Dates: end: 201509
  4. IBRANCE [Suspect]
     Active Substance: PALBOCICLIB
     Indication: BONE METABOLISM DISORDER
     Dosage: 125.0MG UNKNOWN
     Route: 048
     Dates: start: 201601
  5. TAMOXIFEN [Suspect]
     Active Substance: TAMOXIFEN
     Dosage: DOSE AND FREQUENCY UNKNOWN
     Route: 048
     Dates: start: 2004
  6. FEMARA [Suspect]
     Active Substance: LETROZOLE
     Indication: BONE METABOLISM DISORDER
     Dosage: 2.5 BRAND
     Route: 065
     Dates: start: 201605
  7. ADDERALL XR [Concomitant]
     Active Substance: AMPHETAMINE ASPARTATE\AMPHETAMINE SULFATE\DEXTROAMPHETAMINE SACCHARATE\DEXTROAMPHETAMINE SULFATE
     Dosage: 30 MG
  8. XANAX [Concomitant]
     Active Substance: ALPRAZOLAM
     Dosage: 1 MG

REACTIONS (13)
  - Bone neoplasm [Unknown]
  - Diarrhoea [Unknown]
  - Chills [Unknown]
  - Pyrexia [Unknown]
  - Pulmonary pain [Unknown]
  - Bone lesion [Unknown]
  - Bone metabolism disorder [Unknown]
  - Headache [Unknown]
  - Breast mass [Unknown]
  - Fatigue [Unknown]
  - Arthralgia [Unknown]
  - Muscle spasms [Unknown]
  - Withdrawal syndrome [Unknown]

NARRATIVE: CASE EVENT DATE: 2004
